FAERS Safety Report 15669437 (Version 1)
Quarter: 2018Q4

REPORT INFORMATION
  Report Type: Spontaneous
  Country: SE (occurrence: SE)
  Receive Date: 20181129
  Receipt Date: 20181129
  Transmission Date: 20190205
  Serious: Yes (Hospitalization)
  Sender: FDA-Public Use
  Company Number: SE-PFIZER INC-2018489380

PATIENT
  Age: 71 Year
  Sex: Male

DRUGS (13)
  1. FURIX [Concomitant]
     Active Substance: FUROSEMIDE
     Dosage: UNK
     Dates: start: 20171114
  2. WARAN [Concomitant]
     Active Substance: WARFARIN SODIUM
     Dosage: UNK
     Dates: start: 20150922
  3. FOLACIN [FOLIC ACID] [Concomitant]
     Active Substance: FOLIC ACID
     Dosage: UNK
     Dates: start: 20170511
  4. SUSCARD [Concomitant]
     Active Substance: NITROGLYCERIN
     Dosage: UNK
     Dates: start: 20170726
  5. CORDARONE [Suspect]
     Active Substance: AMIODARONE HYDROCHLORIDE
     Indication: CARDIAC PACEMAKER INSERTION
     Dosage: 600 MG, DAILY
     Dates: start: 20180426, end: 20180517
  6. BEHEPAN [CYANOCOBALAMIN] [Concomitant]
     Dosage: UNK
     Dates: start: 20140821
  7. NITROLINGUAL [Concomitant]
     Active Substance: NITROGLYCERIN
     Dosage: UNK
     Dates: start: 20170528
  8. IMDUR [Concomitant]
     Active Substance: ISOSORBIDE MONONITRATE
     Dosage: UNK
     Dates: start: 20170726
  9. SPIRONOLAKTON [Concomitant]
     Active Substance: SPIRONOLACTONE
     Dosage: UNK
     Dates: start: 20170901
  10. ZOPIKLON [Concomitant]
     Active Substance: ZOPICLONE
     Dosage: UNK
     Dates: start: 20180322
  11. ATORVASTATIN [Concomitant]
     Active Substance: ATORVASTATIN
     Dosage: UNK
     Dates: start: 20150922
  12. BISOPROLOL [Concomitant]
     Active Substance: BISOPROLOL
     Dosage: UNK
     Dates: start: 20161003
  13. PROSCAR [Concomitant]
     Active Substance: FINASTERIDE
     Dosage: UNK
     Dates: start: 20150310

REACTIONS (1)
  - Hypersensitivity vasculitis [Not Recovered/Not Resolved]

NARRATIVE: CASE EVENT DATE: 20180510
